FAERS Safety Report 4414791-7 (Version None)
Quarter: 2004Q3

REPORT INFORMATION
  Report Type: 
  Country: None (occurrence: None)
  Receive Date: 20040804
  Receipt Date: 20031003
  Transmission Date: 20050211
  Serious: No
  Sender: FDA-Public Use
  Company Number: US-BRISTOL-MYERS SQUIBB COMPANY-12401360

PATIENT
  Age: 81 Year
  Sex: Female
  Weight: 91 kg

DRUGS (3)
  1. GLUCOVANCE [Suspect]
     Indication: DIABETES MELLITUS
     Dosage: DURATION OF THERAPY:  ^SEVERAL YEARS^
     Route: 048
  2. SYNTHROID [Concomitant]
  3. LIPITOR [Concomitant]

REACTIONS (1)
  - OEDEMA PERIPHERAL [None]
